FAERS Safety Report 24583032 (Version 1)
Quarter: 2024Q4

REPORT INFORMATION
  Report Type: Spontaneous
  Country: US (occurrence: US)
  Receive Date: 20241106
  Receipt Date: 20241106
  Transmission Date: 20250115
  Serious: No
  Sender: UCB
  Company Number: US-UCBSA-2024043433

PATIENT
  Age: 8 Year

DRUGS (22)
  1. LEVETIRACETAM [Suspect]
     Active Substance: LEVETIRACETAM
     Indication: Seizure
     Dosage: UNK (HIGH DOSE)
  2. LEVETIRACETAM [Suspect]
     Active Substance: LEVETIRACETAM
     Indication: Cortical dysplasia
  3. LEVETIRACETAM [Suspect]
     Active Substance: LEVETIRACETAM
     Indication: K-ras gene mutation
  4. LEVETIRACETAM [Suspect]
     Active Substance: LEVETIRACETAM
     Indication: Ganglioglioma
  5. LEVETIRACETAM [Suspect]
     Active Substance: LEVETIRACETAM
     Indication: Off label use
  6. LACOSAMIDE [Suspect]
     Active Substance: LACOSAMIDE
     Indication: Seizure
     Dosage: UNK
  7. LACOSAMIDE [Suspect]
     Active Substance: LACOSAMIDE
     Indication: Cortical dysplasia
  8. LACOSAMIDE [Suspect]
     Active Substance: LACOSAMIDE
     Indication: K-ras gene mutation
  9. LACOSAMIDE [Suspect]
     Active Substance: LACOSAMIDE
     Indication: Ganglioglioma
  10. LACOSAMIDE [Suspect]
     Active Substance: LACOSAMIDE
     Indication: Off label use
  11. OXCARBAZEPINE [Concomitant]
     Active Substance: OXCARBAZEPINE
     Indication: Seizure
     Dosage: UNK
  12. OXCARBAZEPINE [Concomitant]
     Active Substance: OXCARBAZEPINE
     Indication: Cortical dysplasia
  13. OXCARBAZEPINE [Concomitant]
     Active Substance: OXCARBAZEPINE
     Indication: K-ras gene mutation
  14. OXCARBAZEPINE [Concomitant]
     Active Substance: OXCARBAZEPINE
     Indication: Ganglioglioma
  15. ZONISAMIDE [Concomitant]
     Active Substance: ZONISAMIDE
     Indication: Seizure
     Dosage: UNK
  16. ZONISAMIDE [Concomitant]
     Active Substance: ZONISAMIDE
     Indication: Cortical dysplasia
  17. ZONISAMIDE [Concomitant]
     Active Substance: ZONISAMIDE
     Indication: K-ras gene mutation
  18. ZONISAMIDE [Concomitant]
     Active Substance: ZONISAMIDE
     Indication: Ganglioglioma
  19. CENOBAMATE [Concomitant]
     Active Substance: CENOBAMATE
     Indication: Seizure
     Dosage: UNK
  20. CENOBAMATE [Concomitant]
     Active Substance: CENOBAMATE
     Indication: Cortical dysplasia
  21. CENOBAMATE [Concomitant]
     Active Substance: CENOBAMATE
     Indication: K-ras gene mutation
  22. CENOBAMATE [Concomitant]
     Active Substance: CENOBAMATE
     Indication: Ganglioglioma

REACTIONS (2)
  - Off label use [Unknown]
  - Drug ineffective for unapproved indication [Unknown]
